FAERS Safety Report 6670722-0 (Version None)
Quarter: 2010Q2

REPORT INFORMATION
  Report Type: 
  Country: None (occurrence: None)
  Receive Date: 20100407
  Receipt Date: 20100330
  Transmission Date: 20101027
  Serious: Yes (Disabling, Other)
  Sender: FDA-Public Use
  Company Number: AT-ASTRAZENECA-2008PK00624

PATIENT
  Age: 67 Year
  Sex: Male
  Weight: 82 kg

DRUGS (3)
  1. CASODEX [Suspect]
     Indication: PROSTATE CANCER
     Route: 048
     Dates: start: 20050501, end: 20051101
  2. CASODEX [Suspect]
     Route: 048
     Dates: start: 20061201, end: 20070201
  3. ZOLADEX [Suspect]
     Indication: PROSTATE CANCER
     Route: 058
     Dates: start: 20050501, end: 20050801

REACTIONS (18)
  - ADENOTONSILLECTOMY [None]
  - AGGRESSION [None]
  - ASTHMA [None]
  - BLOOD PRESSURE INCREASED [None]
  - BREAST TENDERNESS [None]
  - BRONCHITIS CHRONIC [None]
  - DEPRESSION [None]
  - FLATULENCE [None]
  - GYNAECOMASTIA [None]
  - HEART RATE INCREASED [None]
  - HORMONE THERAPY [None]
  - HOT FLUSH [None]
  - HYPERSENSITIVITY [None]
  - HYPERTENSION [None]
  - HYPERTENSIVE CARDIOMYOPATHY [None]
  - IMMUNE SYSTEM DISORDER [None]
  - POLYNEUROPATHY [None]
  - TINNITUS [None]
